FAERS Safety Report 12428251 (Version 1)
Quarter: 2016Q2

REPORT INFORMATION
  Report Type: Spontaneous
  Country: None (occurrence: None)
  Receive Date: 20160601
  Receipt Date: 20160601
  Transmission Date: 20160815
  Serious: Yes (Other)
  Sender: FDA-Public Use
  Company Number: None

PATIENT
  Age: 34 Year
  Sex: Female
  Weight: 136.99 kg

DRUGS (5)
  1. SINGULAIR [Concomitant]
     Active Substance: MONTELUKAST SODIUM
  2. LEVOTHYROXINE. [Concomitant]
     Active Substance: LEVOTHYROXINE
  3. ZYRTEC [Concomitant]
     Active Substance: CETIRIZINE HYDROCHLORIDE
  4. ALBUTEROL. [Concomitant]
     Active Substance: ALBUTEROL
  5. METHYLPREDNISOLONE TABLETS 4MG, 4 MG [Suspect]
     Active Substance: METHYLPREDNISOLONE
     Indication: UVEITIS
     Dosage: 21 TABLET(S) SIX DAY TAPER PACK TAKEN BY MOUTH
     Route: 048
     Dates: start: 20160517, end: 20160522

REACTIONS (2)
  - Fatigue [None]
  - Ventricular extrasystoles [None]

NARRATIVE: CASE EVENT DATE: 20160523
